FAERS Safety Report 13747047 (Version 1)
Quarter: 2017Q3

REPORT INFORMATION
  Report Type: Spontaneous
  Country: US (occurrence: US)
  Receive Date: 20170712
  Receipt Date: 20170712
  Transmission Date: 20171127
  Serious: No
  Sender: FDA-Public Use
  Company Number: US-MANNKIND CORPORATION-2017MK000042

PATIENT
  Sex: Female
  Weight: 65.83 kg

DRUGS (5)
  1. NOVOLOG [Concomitant]
     Active Substance: INSULIN ASPART
     Indication: TYPE 1 DIABETES MELLITUS
     Route: 065
     Dates: start: 201610
  2. AFREZZA [Suspect]
     Active Substance: INSULIN HUMAN
     Indication: TYPE 1 DIABETES MELLITUS
     Dosage: 4 IU AND 8 IU AS NEEDED
     Dates: start: 201703
  3. ALBUTEROL. [Concomitant]
     Active Substance: ALBUTEROL
     Indication: ASTHMA
  4. AFREZZA [Suspect]
     Active Substance: INSULIN HUMAN
     Dosage: 4 IU AND 8 IU AS NEEDED
     Dates: start: 201703
  5. TRESIBA [Concomitant]
     Active Substance: INSULIN DEGLUDEC
     Indication: TYPE 1 DIABETES MELLITUS
     Route: 065
     Dates: start: 201606

REACTIONS (4)
  - Productive cough [Unknown]
  - Pruritus [Unknown]
  - Asthma [Not Recovered/Not Resolved]
  - Contraindicated product administered [Not Recovered/Not Resolved]

NARRATIVE: CASE EVENT DATE: 2017
